FAERS Safety Report 9402032 (Version 2)
Quarter: 2013Q3

REPORT INFORMATION
  Report Type: Spontaneous
  Country: JP (occurrence: JP)
  Receive Date: 20130716
  Receipt Date: 20130806
  Transmission Date: 20140515
  Serious: Yes (Hospitalization)
  Sender: FDA-Public Use
  Company Number: PHHY2013JP074423

PATIENT
  Age: 69 Year
  Sex: Male

DRUGS (2)
  1. TEGRETOL [Suspect]
     Indication: TRIGEMINAL NEURALGIA
     Dosage: 800 MG, DAILY
     Route: 048
     Dates: start: 201306, end: 20130710
  2. TEGRETOL [Suspect]
     Dosage: 400 MG, DAILY
     Route: 048

REACTIONS (5)
  - Toxicity to various agents [Recovered/Resolved]
  - Drug level increased [Unknown]
  - Depressed level of consciousness [Recovered/Resolved]
  - Malaise [Unknown]
  - Nausea [Recovered/Resolved]
